FAERS Safety Report 20506602 (Version 1)
Quarter: 2022Q1

REPORT INFORMATION
  Report Type: Spontaneous
  Country: US (occurrence: US)
  Receive Date: 20220223
  Receipt Date: 20220223
  Transmission Date: 20220423
  Serious: No
  Sender: FDA-Public Use
  Company Number: US-TARO-2021TAR00118

PATIENT

DRUGS (2)
  1. FLUOCINONIDE [Suspect]
     Active Substance: FLUOCINONIDE
     Indication: Pruritus
     Dosage: UNK
     Route: 061
     Dates: start: 20210201
  2. FLUOCINONIDE [Suspect]
     Active Substance: FLUOCINONIDE
     Dosage: UNK
     Route: 061

REACTIONS (2)
  - Eye irritation [Not Recovered/Not Resolved]
  - Off label use [Unknown]

NARRATIVE: CASE EVENT DATE: 20210201
